FAERS Safety Report 13361468 (Version 2)
Quarter: 2017Q1

REPORT INFORMATION
  Report Type: Spontaneous
  Country: US (occurrence: US)
  Receive Date: 20170323
  Receipt Date: 20170324
  Transmission Date: 20170429
  Serious: No
  Sender: FDA-Public Use
  Company Number: US-TEVA-743718USA

PATIENT
  Age: 70 Year
  Sex: Female
  Weight: 70.37 kg

DRUGS (8)
  1. ACTIQ [Suspect]
     Active Substance: FENTANYL CITRATE
     Indication: NERVE ROOT COMPRESSION
  2. KINERET [Concomitant]
     Active Substance: ANAKINRA
     Indication: CROWNED DENS SYNDROME
  3. FENTANYL TRANSDERMAL SYSTEM [Concomitant]
     Active Substance: FENTANYL
     Indication: PAIN
  4. OXYCONTIN [Concomitant]
     Active Substance: OXYCODONE HYDROCHLORIDE
     Indication: PAIN
  5. ACTIQ [Suspect]
     Active Substance: FENTANYL CITRATE
     Indication: COWDEN^S DISEASE
  6. ACTIQ [Suspect]
     Active Substance: FENTANYL CITRATE
     Indication: SPINAL OPERATION
  7. ACTIQ [Suspect]
     Active Substance: FENTANYL CITRATE
     Indication: SPINAL DISORDER
  8. ACTIQ [Suspect]
     Active Substance: FENTANYL CITRATE
     Indication: PAIN
     Route: 065
     Dates: end: 201701

REACTIONS (7)
  - Pain [Not Recovered/Not Resolved]
  - Activities of daily living impaired [Not Recovered/Not Resolved]
  - Product use issue [Unknown]
  - Therapeutic response unexpected [Recovered/Resolved]
  - Headache [Not Recovered/Not Resolved]
  - Spinal column stenosis [Not Recovered/Not Resolved]
  - Impaired work ability [Not Recovered/Not Resolved]

NARRATIVE: CASE EVENT DATE: 201701
